FAERS Safety Report 6367253-4 (Version None)
Quarter: 2009Q3

REPORT INFORMATION
  Report Type: 
  Country: None (occurrence: None)
  Receive Date: 20090921
  Receipt Date: 20090916
  Transmission Date: 20100115
  Serious: Yes (Hospitalization, Other)
  Sender: FDA-Public Use
  Company Number: US-MERCK-0901USA00626

PATIENT
  Age: 66 Year
  Sex: Female

DRUGS (2)
  1. FOSAMAX [Suspect]
     Indication: OSTEOPENIA
     Route: 048
     Dates: start: 19950901
  2. FOSAMAX [Suspect]
     Route: 048
     Dates: end: 20080101

REACTIONS (39)
  - ABSCESS ORAL [None]
  - ANIMAL BITE [None]
  - ANXIETY [None]
  - ARTERIOSCLEROSIS CORONARY ARTERY [None]
  - ARTHROPATHY [None]
  - BONE DENSITY DECREASED [None]
  - BONE DISORDER [None]
  - BRONCHITIS [None]
  - BURSITIS [None]
  - CARDIAC MURMUR [None]
  - CONTUSION [None]
  - DENTAL CARIES [None]
  - DEPRESSION [None]
  - DEVICE FAILURE [None]
  - DIZZINESS POSTURAL [None]
  - EUSTACHIAN TUBE DYSFUNCTION [None]
  - FACIAL PALSY [None]
  - FALL [None]
  - GASTROOESOPHAGEAL REFLUX DISEASE [None]
  - HAEMOPTYSIS [None]
  - HYPOAESTHESIA ORAL [None]
  - ILIUM FRACTURE [None]
  - IMPAIRED HEALING [None]
  - INFECTED BITES [None]
  - LACERATION [None]
  - NASAL SEPTUM DEVIATION [None]
  - ORAL DYSAESTHESIA [None]
  - OSTEOARTHRITIS [None]
  - OSTEOMYELITIS [None]
  - OSTEONECROSIS [None]
  - PAIN [None]
  - PARAESTHESIA [None]
  - RADIUS FRACTURE [None]
  - RIB FRACTURE [None]
  - SINUSITIS [None]
  - STOMATITIS [None]
  - TRISMUS [None]
  - UPPER RESPIRATORY TRACT INFECTION [None]
  - WEIGHT INCREASED [None]
